FAERS Safety Report 14356050 (Version 2)
Quarter: 2018Q4

REPORT INFORMATION
  Report Type: Spontaneous
  Country: IT (occurrence: IT)
  Receive Date: 20180105
  Receipt Date: 20181017
  Transmission Date: 20190204
  Serious: Yes (Other)
  Sender: FDA-Public Use
  Company Number: IT-JNJFOC-20180101329

PATIENT

DRUGS (3)
  1. GOLIMUMAB [Suspect]
     Active Substance: GOLIMUMAB
     Indication: COLITIS ULCERATIVE
     Dosage: 50 MG OR 100 MG EVERY 4 WEEKS
     Route: 058
  2. GOLIMUMAB [Suspect]
     Active Substance: GOLIMUMAB
     Indication: COLITIS ULCERATIVE
     Dosage: 200 MG AT WEEK-0
     Route: 058
  3. GOLIMUMAB [Suspect]
     Active Substance: GOLIMUMAB
     Indication: COLITIS ULCERATIVE
     Dosage: 100 MG AT WEEK-2
     Route: 058

REACTIONS (7)
  - Genitourinary tract infection [Unknown]
  - Rash pustular [Unknown]
  - Basal cell carcinoma [Unknown]
  - Treatment failure [Unknown]
  - Herpes simplex [Unknown]
  - Urinary tract infection [Unknown]
  - Lymphadenopathy [Unknown]
